FAERS Safety Report 15954073 (Version 1)
Quarter: 2019Q1

REPORT INFORMATION
  Report Type: Spontaneous
  Country: CN (occurrence: CN)
  Receive Date: 20190212
  Receipt Date: 20190212
  Transmission Date: 20190417
  Serious: Yes (Hospitalization)
  Sender: FDA-Public Use
  Company Number: CN-ELI_LILLY_AND_COMPANY-CN201902000292

PATIENT
  Age: 61 Year
  Sex: Male
  Weight: 70 kg

DRUGS (7)
  1. GEMZAR [Suspect]
     Active Substance: GEMCITABINE HYDROCHLORIDE
     Dosage: 1.6 G, UNKNOWN
     Route: 041
     Dates: start: 20181121, end: 20181121
  2. CISPLATIN. [Suspect]
     Active Substance: CISPLATIN
     Indication: CHEMOTHERAPY
     Dosage: 30 MG, UNKNOWN
     Route: 041
     Dates: start: 20181114, end: 20181114
  3. GEMZAR [Suspect]
     Active Substance: GEMCITABINE HYDROCHLORIDE
     Indication: CHEMOTHERAPY
     Dosage: 1.4 G, UNKNOWN
     Route: 041
     Dates: start: 20181114, end: 20181114
  4. SODIUM CHLORIDE IV [Suspect]
     Active Substance: SODIUM CHLORIDE
     Indication: CHEMOTHERAPY
     Dosage: 600 ML, UNKNOWN
     Route: 041
     Dates: start: 20181114, end: 20181114
  5. SODIUM CHLORIDE IV [Suspect]
     Active Substance: SODIUM CHLORIDE
     Dosage: 100 ML, UNKNOWN
     Route: 041
     Dates: start: 20181121, end: 20181121
  6. SODIUM CHLORIDE IV [Suspect]
     Active Substance: SODIUM CHLORIDE
     Dosage: 500 ML, UNKNOWN
     Route: 041
     Dates: start: 20181117, end: 20181117
  7. CISPLATIN. [Suspect]
     Active Substance: CISPLATIN
     Dosage: 30 MG, UNKNOWN
     Route: 041
     Dates: start: 20181117, end: 20181117

REACTIONS (4)
  - Cytopenia [Recovering/Resolving]
  - Nausea [Recovering/Resolving]
  - Abdominal discomfort [Recovering/Resolving]
  - Gastrointestinal disorder [Recovering/Resolving]

NARRATIVE: CASE EVENT DATE: 20181115
